FAERS Safety Report 16572281 (Version 2)
Quarter: 2019Q3

REPORT INFORMATION
  Report Type: Spontaneous
  Country: DE (occurrence: DE)
  Receive Date: 20190715
  Receipt Date: 20190715
  Transmission Date: 20191004
  Serious: Yes (Hospitalization)
  Sender: FDA-Public Use
  Company Number: PHHY2019DE158477

PATIENT
  Age: 78 Year
  Sex: Male
  Weight: 60 kg

DRUGS (13)
  1. TACROLIMUS. [Suspect]
     Active Substance: TACROLIMUS
     Indication: PRODUCT USED FOR UNKNOWN INDICATION
     Dosage: UNK (1.5 MG, 1-0-0-0, KAPSELN)
     Route: 048
  2. URBASON [Suspect]
     Active Substance: METHYLPREDNISOLONE
     Indication: PRODUCT USED FOR UNKNOWN INDICATION
     Dosage: UNK (4 MG, 1-0-0-0, TABLETTEN)
     Route: 048
  3. ACETYLSALICYLSAEURE [Concomitant]
     Active Substance: ASPIRIN
     Indication: PRODUCT USED FOR UNKNOWN INDICATION
     Dosage: 100 MG, 1-0-0-0, TABLETTEN
     Route: 048
  4. ATORVASTATIN [Concomitant]
     Active Substance: ATORVASTATIN
     Indication: PRODUCT USED FOR UNKNOWN INDICATION
     Dosage: UNK (20 MG, 0-0-1-0, TABLETTEN)
     Route: 048
  5. TORASEMID [Concomitant]
     Active Substance: TORSEMIDE
     Indication: PRODUCT USED FOR UNKNOWN INDICATION
     Dosage: UNK (5 MG, BEI BEDARF, TABLETTEN)
     Route: 048
  6. SALOFALK GR [Concomitant]
     Indication: PRODUCT USED FOR UNKNOWN INDICATION
     Dosage: UNK (1 G, 1-1-0-0, RETARDGRANULAT)
     Route: 048
  7. CALCITRIOL. [Concomitant]
     Active Substance: CALCITRIOL
     Indication: PRODUCT USED FOR UNKNOWN INDICATION
     Dosage: UNK (0.75 ?G, 1-0-0-0, TABLETTEN)
     Route: 048
  8. LOPERAMID [Concomitant]
     Active Substance: LOPERAMIDE
     Indication: PRODUCT USED FOR UNKNOWN INDICATION
     Dosage: UNK (2 MG, 1-0-0-0, TABLETTEN)
     Route: 048
  9. LEVOTHYROXINE SODIUM. [Concomitant]
     Active Substance: LEVOTHYROXINE SODIUM
     Indication: PRODUCT USED FOR UNKNOWN INDICATION
     Dosage: UNK (150 ?G, 1-0-0-0, TABLETTEN)
     Route: 048
  10. MYFORTIC [Suspect]
     Active Substance: MYCOPHENOLATE SODIUM
     Indication: PRODUCT USED FOR UNKNOWN INDICATION
     Dosage: UNK (180 MG, 1-0-1-0, TABLETTEN)
     Route: 048
  11. CARVEDILOL. [Concomitant]
     Active Substance: CARVEDILOL
     Indication: PRODUCT USED FOR UNKNOWN INDICATION
     Dosage: UNK (6.25 MG, 0.5-0-0.5-0, TABLETTEN)
     Route: 048
  12. DARBEPOETIN ALFA [Concomitant]
     Active Substance: DARBEPOETIN ALFA
     Indication: PRODUCT USED FOR UNKNOWN INDICATION
     Dosage: UNK (60 ?G, 1-0-0-0, ALLE 2 WOCHEN, INJEKTIONS-/INFUSIONSL?SUNG)
     Route: 058
  13. TAMSULOSIN [Concomitant]
     Active Substance: TAMSULOSIN
     Indication: PRODUCT USED FOR UNKNOWN INDICATION
     Dosage: UNK (0.4 MG, 1-0-0-0, KAPSELN)
     Route: 048

REACTIONS (3)
  - Renal impairment [Unknown]
  - Diarrhoea [Unknown]
  - General physical health deterioration [Unknown]
